FAERS Safety Report 4860812-7 (Version None)
Quarter: 2005Q4

REPORT INFORMATION
  Report Type: 
  Country: None (occurrence: None)
  Receive Date: 20051220
  Receipt Date: 20051028
  Transmission Date: 20060501
  Serious: No
  Sender: FDA-Public Use
  Company Number: US-BRISTOL-MYERS SQUIBB COMPANY-13160767

PATIENT
  Sex: Female

DRUGS (1)
  1. BARACLUDE [Suspect]
     Indication: HEPATITIS
     Dates: start: 20050101, end: 20050101

REACTIONS (3)
  - ARTHRALGIA [None]
  - HEADACHE [None]
  - NAUSEA [None]
